FAERS Safety Report 6028112-X (Version None)
Quarter: 2008Q4

REPORT INFORMATION
  Report Type: 
  Country: None (occurrence: None)
  Receive Date: 20081231
  Receipt Date: 20081231
  Transmission Date: 20090506
  Serious: Yes (Hospitalization)
  Sender: FDA-Public Use
  Company Number: None

PATIENT
  Age: 63 Year
  Sex: Male

DRUGS (13)
  1. ZYPREXA [Suspect]
     Dosage: 40MG QHS PO
     Route: 048
     Dates: start: 20080218, end: 20080416
  2. ACETAMINOPHEN [Concomitant]
  3. ASPIRIN [Concomitant]
  4. CALCIUM/VIT D [Concomitant]
  5. CARBAMIDE PEROXIDE [Concomitant]
  6. DIVALPROEX EXTENDED-RELEASE [Concomitant]
  7. HALOPERIDOL [Concomitant]
  8. LEVOTHYROXINE SODIUM [Concomitant]
  9. LORAZEPAM [Concomitant]
  10. MAGNESIUM HYDROXIDE TAB [Concomitant]
  11. M.V.I. [Concomitant]
  12. PANTOPRAZOLE SODIUM [Concomitant]
  13. SELENIUM SULFIDE [Concomitant]

REACTIONS (2)
  - FEBRILE NEUTROPENIA [None]
  - HYPOXIA [None]
